FAERS Safety Report 18557436 (Version 4)
Quarter: 2021Q1

REPORT INFORMATION
  Report Type: Other
  Country: JP (occurrence: JP)
  Receive Date: 20201129
  Receipt Date: 20210316
  Transmission Date: 20210419
  Serious: Yes (Hospitalization)
  Sender: FDA-Public Use
  Company Number: JP-ROCHE-2717322

PATIENT
  Age: 63 Year
  Sex: Male
  Weight: 57 kg

DRUGS (19)
  1. BAKTAR [Concomitant]
     Active Substance: SULFAMETHOXAZOLE\TRIMETHOPRIM
     Indication: PROPHYLAXIS URINARY TRACT INFECTION
     Route: 048
     Dates: start: 2016, end: 20200928
  2. ACTONEL [Concomitant]
     Active Substance: RISEDRONATE SODIUM
     Indication: OSTEOPOROSIS PROPHYLAXIS
     Route: 048
     Dates: start: 2016, end: 20200928
  3. MITIGLINIDE CALCIUM [Concomitant]
     Active Substance: MITIGLINIDE CALCIUM ANHYDROUS
     Indication: DIABETES MELLITUS
     Route: 048
     Dates: start: 20180620, end: 20200928
  4. AZANIN [Concomitant]
     Active Substance: AZATHIOPRINE
     Indication: NEUROMYELITIS OPTICA SPECTRUM DISORDER
     Route: 048
     Dates: start: 20200111, end: 20200928
  5. CRESTOR OD [Concomitant]
     Active Substance: ROSUVASTATIN CALCIUM
     Indication: HYPERLIPIDAEMIA
     Route: 048
     Dates: start: 2014, end: 20200928
  6. LYRICA [Concomitant]
     Active Substance: PREGABALIN
     Indication: NEURALGIA
     Route: 048
     Dates: start: 2014, end: 20200928
  7. EQUA [Concomitant]
     Active Substance: VILDAGLIPTIN
     Indication: DIABETES MELLITUS
     Route: 048
     Dates: start: 20170710, end: 20200928
  8. ANTEBATE [Concomitant]
     Active Substance: BETAMETHASONE DIPROPIONATE
     Indication: URTICARIA
     Dosage: PROPER QUANTITY DURING A DAY TWICE
     Route: 061
     Dates: start: 20200520
  9. LOCOID [Concomitant]
     Active Substance: HYDROCORTISONE BUTYRATE
     Indication: DERMATITIS
     Dosage: PROPER QUANTITY DURING A DAY TWICE
     Route: 061
     Dates: start: 20200401
  10. TERBINAFINE. [Concomitant]
     Active Substance: TERBINAFINE
     Indication: DERMATITIS
     Route: 048
     Dates: start: 20200401, end: 20200928
  11. UBRETID [Concomitant]
     Active Substance: DISTIGMINE BROMIDE
     Indication: BENIGN PROSTATIC HYPERPLASIA
     Route: 048
     Dates: start: 20190426, end: 20200928
  12. AZUNOL [Concomitant]
     Indication: SKIN EROSION
     Dosage: AS NEEDED, PROPER AMOUNT
     Route: 061
     Dates: start: 20190823
  13. SATRALIZUMAB. [Suspect]
     Active Substance: SATRALIZUMAB
     Indication: NEUROMYELITIS OPTICA SPECTRUM DISORDER
     Route: 058
     Dates: start: 20201106
  14. PREDONINE [Concomitant]
     Active Substance: PREDNISOLONE
     Indication: NEUROMYELITIS OPTICA SPECTRUM DISORDER
     Route: 048
     Dates: start: 20200904, end: 20200928
  15. PROSTANDIN [Concomitant]
     Indication: DECUBITUS ULCER
     Dosage: AS NEEDED, PROPER AMOUNT
     Route: 061
     Dates: start: 2014
  16. MOHRUS L [Concomitant]
     Active Substance: KETOPROFEN
     Indication: NEUROMYELITIS OPTICA SPECTRUM DISORDER
     Dosage: AS NEEDED, PROPER AMOUNT
     Route: 061
     Dates: start: 2016
  17. RIVOTRIL [Concomitant]
     Active Substance: CLONAZEPAM
     Indication: NEURALGIA
     Route: 048
     Dates: start: 2014, end: 20200928
  18. GABALON [Concomitant]
     Active Substance: BACLOFEN
     Indication: PARALYSIS
     Route: 048
     Dates: start: 20180921, end: 20200928
  19. NEXIUM [Concomitant]
     Active Substance: ESOMEPRAZOLE MAGNESIUM
     Indication: GASTRITIS PROPHYLAXIS
     Route: 048
     Dates: start: 2014, end: 20200928

REACTIONS (2)
  - Urinary tract infection [Unknown]
  - Catheter site inflammation [Unknown]

NARRATIVE: CASE EVENT DATE: 20201108
